FAERS Safety Report 24368010 (Version 1)
Quarter: 2024Q3

REPORT INFORMATION
  Report Type: Spontaneous
  Country: CN (occurrence: CN)
  Receive Date: 20240926
  Receipt Date: 20240926
  Transmission Date: 20241017
  Serious: Yes (Death)
  Sender: BOEHRINGER INGELHEIM
  Company Number: CN-BoehringerIngelheim-2024-BI-052912

PATIENT
  Age: 71 Year
  Sex: Male

DRUGS (2)
  1. GILOTRIF [Suspect]
     Active Substance: AFATINIB
     Indication: Lung squamous cell carcinoma stage III
     Route: 048
     Dates: start: 201901
  2. GILOTRIF [Suspect]
     Active Substance: AFATINIB
     Indication: Gene mutation

REACTIONS (3)
  - Interstitial lung disease [Fatal]
  - Vomiting [Recovered/Resolved]
  - Erythrasma [Recovered/Resolved]
